FAERS Safety Report 22653149 (Version 1)
Quarter: 2023Q2

REPORT INFORMATION
  Report Type: Other
  Country: None (occurrence: JP)
  Receive Date: 20230629
  Receipt Date: 20230629
  Transmission Date: 20230722
  Serious: Yes (Hospitalization, Other)
  Sender: FDA-Public Use
  Company Number: JP-Spectra Medical Devices, LLC-2143231

PATIENT
  Sex: Male

DRUGS (3)
  1. SODIUM CHLORIDE [Suspect]
     Active Substance: SODIUM CHLORIDE
     Indication: Empyema
     Route: 038
  2. UROKINASE [Suspect]
     Active Substance: UROKINASE
     Route: 065
  3. AMPICILLIN SODIUM\SULBACTAM SODIUM [Concomitant]
     Active Substance: AMPICILLIN SODIUM\SULBACTAM SODIUM
     Route: 065

REACTIONS (4)
  - Cerebral artery embolism [Recovered/Resolved]
  - Paralysis [Recovered/Resolved]
  - Gaze palsy [Recovered/Resolved]
  - Altered state of consciousness [Recovered/Resolved]
